FAERS Safety Report 16894264 (Version 1)
Quarter: 2019Q4

REPORT INFORMATION
  Report Type: Spontaneous
  Country: US (occurrence: US)
  Receive Date: 20191007
  Receipt Date: 20191007
  Transmission Date: 20200122
  Serious: No
  Sender: FDA-Public Use
  Company Number: None

PATIENT
  Age: 48 Year
  Sex: Male
  Weight: 89.55 kg

DRUGS (2)
  1. CISPLATIN. [Suspect]
     Active Substance: CISPLATIN
     Indication: NASOPHARYNGEAL CANCER
     Dosage: ?          OTHER FREQUENCY:EVERY 4 WEEKS;?
     Route: 042
     Dates: start: 20190905, end: 20191003
  2. GEMCITABINE. [Concomitant]
     Active Substance: GEMCITABINE
     Dates: start: 20190905, end: 20191003

REACTIONS (3)
  - Chest discomfort [None]
  - Hot flush [None]
  - Nausea [None]

NARRATIVE: CASE EVENT DATE: 20191003
